FAERS Safety Report 9190198 (Version 3)
Quarter: 2013Q3

REPORT INFORMATION
  Report Type: Report from Study
  Country: JP (occurrence: JP)
  Receive Date: 20130326
  Receipt Date: 20130708
  Transmission Date: 20140515
  Serious: Yes (Hospitalization)
  Sender: FDA-Public Use
  Company Number: JP-NAPPMUNDI-GBR-2013-0013483

PATIENT
  Age: 68 Year
  Sex: 0

DRUGS (13)
  1. OXYCODONE HCL PR TABLET [Suspect]
     Indication: CANCER PAIN
     Dosage: 80 MG, DAILY
     Route: 048
     Dates: start: 20120609, end: 20120616
  2. OXYCODONE HCL PR TABLET [Suspect]
     Dosage: 60 MG, DAILY
     Route: 048
     Dates: start: 20120601, end: 20120608
  3. OXYCODONE HCL PR TABLET [Suspect]
     Dosage: 50 MG, DAILY
     Route: 048
     Dates: start: 20120531, end: 20120531
  4. OXYCODONE HCL PR TABLET [Suspect]
     Dosage: 40 MG, DAILY
     Route: 048
     Dates: start: 20120530, end: 20120530
  5. OXYCODONE HCL IR POWDER 0.5% [Concomitant]
     Indication: CANCER PAIN
     Dosage: 30 MG, DAILY
     Route: 048
     Dates: start: 20120628, end: 20120713
  6. OXYCODONE HCL IR POWDER 0.5% [Concomitant]
     Dosage: 20 MG, DAILY
     Route: 048
     Dates: start: 20120621, end: 20120627
  7. OXYCODONE HCL IR POWDER 0.5% [Concomitant]
     Dosage: 15 MG, DAILY
     Route: 048
     Dates: start: 20120619, end: 20120620
  8. OXYCODONE HCL IR POWDER 0.5% [Concomitant]
     Dosage: 10 MG, DAILY
     Route: 048
     Dates: start: 20120601, end: 20120619
  9. OXYCODONE HCL IR POWDER 0.5% [Concomitant]
     Dosage: 5 MG, DAILY
     Route: 048
     Dates: start: 20120530, end: 20120531
  10. LOXOPROFEN [Concomitant]
     Indication: CANCER PAIN
     Dosage: 3 DF, DAILY
     Dates: end: 20120613
  11. ACETAMINOPHEN [Concomitant]
     Dosage: 1200 MG, DAILY
  12. NOVAMIN                            /00013301/ [Concomitant]
     Indication: PROPHYLAXIS
     Dosage: 3 DF, DAILY
     Route: 048
     Dates: start: 20120521, end: 20120614
  13. MAGNESIUM OXIDE [Concomitant]
     Indication: PROPHYLAXIS
     Dosage: 1980 MG, DAILY
     Route: 048
     Dates: end: 20120715

REACTIONS (1)
  - Delirium [Recovering/Resolving]
